FAERS Safety Report 18337938 (Version 3)
Quarter: 2020Q4

REPORT INFORMATION
  Report Type: Spontaneous
  Country: FR (occurrence: FR)
  Receive Date: 20201002
  Receipt Date: 20201030
  Transmission Date: 20210113
  Serious: Yes (Hospitalization)
  Sender: FDA-Public Use
  Company Number: FR-B.I. PHARMACEUTICALS,INC./RIDGEFIELD-2020-BI-051593

PATIENT
  Age: 35 Year
  Sex: Female
  Weight: 63 kg

DRUGS (4)
  1. VENTOLINE [SALBUTAMOL SULFATE] [Suspect]
     Active Substance: ALBUTEROL SULFATE
     Dosage: 5 MG, QD
     Route: 055
  2. ATROVENT [Suspect]
     Active Substance: IPRATROPIUM BROMIDE
     Indication: ASTHMA
     Dosage: 0.5 MG
     Route: 055
     Dates: start: 20200910, end: 20200911
  3. SOLMUCOL [Suspect]
     Active Substance: ACETYLCYSTEINE
     Indication: ASTHMA
     Dosage: 60 MG
     Route: 042
     Dates: start: 20200910, end: 20200911
  4. VENTOLINE [SALBUTAMOL SULFATE] [Suspect]
     Active Substance: ALBUTEROL SULFATE
     Indication: ASTHMATIC CRISIS
     Dosage: UNK, TID
     Route: 065
     Dates: start: 20200909, end: 20200909

REACTIONS (3)
  - Product complaint [Unknown]
  - Hyperlactacidaemia [Recovered/Resolved with Sequelae]
  - Drug ineffective [Unknown]

NARRATIVE: CASE EVENT DATE: 20200910
